FAERS Safety Report 22354654 (Version 2)
Quarter: 2023Q2

REPORT INFORMATION
  Report Type: Spontaneous
  Country: IN (occurrence: IN)
  Receive Date: 20230523
  Receipt Date: 20230530
  Transmission Date: 20230722
  Serious: Yes (Death, Hospitalization, Other)
  Sender: FDA-Public Use
  Company Number: IN-PFIZER INC-PV202300088840

PATIENT
  Age: 4 Year
  Sex: Female

DRUGS (2)
  1. CARBOPLATIN [Suspect]
     Active Substance: CARBOPLATIN
     Indication: Squamous cell carcinoma of skin
     Dosage: EVERY 3 WEEKS (AREA UNDER CURVE = 6)
  2. PACLITAXEL [Suspect]
     Active Substance: PACLITAXEL
     Indication: Squamous cell carcinoma of skin
     Dosage: 175 MG/M2, EVERY 3 WEEKS (3 WEEKLY)

REACTIONS (8)
  - Acute kidney injury [Fatal]
  - Hepatotoxicity [Fatal]
  - Diarrhoea [Fatal]
  - Haemodynamic instability [Fatal]
  - Depressed level of consciousness [Fatal]
  - Metabolic acidosis [Fatal]
  - Dystonia [Fatal]
  - Off label use [Unknown]
